FAERS Safety Report 6034562-8 (Version None)
Quarter: 2009Q1

REPORT INFORMATION
  Report Type: 
  Country: None (occurrence: None)
  Receive Date: 20090112
  Receipt Date: 20090108
  Transmission Date: 20090719
  Serious: Yes (Hospitalization)
  Sender: FDA-Public Use
  Company Number: DE-ABBOTT-09P-062-0496432-00

PATIENT
  Sex: Female

DRUGS (2)
  1. HUMIRA [Suspect]
     Indication: CROHN'S DISEASE
     Route: 058
     Dates: start: 20080716, end: 20081021
  2. HUMIRA [Suspect]
     Route: 058
     Dates: start: 20081218

REACTIONS (3)
  - FISTULA [None]
  - GASTROINTESTINAL BACTERIAL INFECTION [None]
  - NASOPHARYNGITIS [None]
